FAERS Safety Report 25684705 (Version 1)
Quarter: 2025Q3

REPORT INFORMATION
  Report Type: Report from Study
  Country: US (occurrence: US)
  Receive Date: 20250815
  Receipt Date: 20250815
  Transmission Date: 20251021
  Serious: No
  Sender: SUNOVION
  Company Number: US-SUMITOMO PHARMA SWITZERLAND GMBH-2025SPA006753

PATIENT
  Age: 88 Year
  Sex: Male

DRUGS (2)
  1. ORGOVYX [Suspect]
     Active Substance: RELUGOLIX
     Indication: Prostate cancer
     Dosage: 120 MG, QD
     Route: 048
     Dates: start: 20250401
  2. XTANDI [Concomitant]
     Active Substance: ENZALUTAMIDE

REACTIONS (7)
  - Nasal congestion [Unknown]
  - Lymphoedema [Unknown]
  - Blister [Unknown]
  - Peripheral swelling [Unknown]
  - Concomitant disease aggravated [Unknown]
  - Product dose omission in error [Recovered/Resolved]
  - Incorrect dose administered [Recovered/Resolved]
